FAERS Safety Report 24090719 (Version 1)
Quarter: 2024Q3

REPORT INFORMATION
  Report Type: Spontaneous
  Country: US (occurrence: US)
  Receive Date: 20240715
  Receipt Date: 20240715
  Transmission Date: 20241017
  Serious: No
  Sender: DR REDDYS
  Company Number: US-DRL-USA-LIT/USA/24/0010131

PATIENT
  Age: 43 Year
  Sex: Male

DRUGS (1)
  1. BIVALIRUDIN [Suspect]
     Active Substance: BIVALIRUDIN
     Indication: Thrombosis prophylaxis
     Dosage: 0.1 UNITS/KG/H.

REACTIONS (1)
  - Epistaxis [Recovered/Resolved]
